FAERS Safety Report 10049110 (Version 2)
Quarter: 2014Q2

REPORT INFORMATION
  Report Type: Report from Study
  Country: CA (occurrence: CA)
  Receive Date: 20140401
  Receipt Date: 20140408
  Transmission Date: 20141212
  Serious: Yes (Hospitalization)
  Sender: FDA-Public Use
  Company Number: CA-AMGEN-CANCT2014021396

PATIENT
  Age: 82 Year
  Sex: Female
  Weight: 71.5 kg

DRUGS (16)
  1. DENOSUMAB [Suspect]
     Indication: PLASMA CELL MYELOMA
     Dosage: 120 MG, UNK
     Route: 058
     Dates: start: 20130527
  2. SENOKOT                            /00142201/ [Concomitant]
     Dosage: 2 DF, QHS
     Route: 048
     Dates: start: 2011
  3. VENTOLIN                           /00139501/ [Concomitant]
     Dosage: 2 PUFFS, PRN
     Route: 055
     Dates: start: 2010
  4. ATROVENT [Concomitant]
     Dosage: 2 UNK, UNK
     Route: 055
     Dates: start: 2010
  5. CALCIUM CARBONATE [Concomitant]
     Dosage: 1250 MG, TID
     Route: 048
     Dates: start: 20130527
  6. VITAMIN D                          /00107901/ [Concomitant]
     Dosage: 1000 IU, UNK
     Route: 048
     Dates: start: 20130527
  7. VALACYCLOVIR [Concomitant]
     Dosage: 500 MG, UNK
     Route: 048
     Dates: start: 20130527
  8. METOCLOPRAMIDE [Concomitant]
     Dosage: 20 MG, PRN, UNK
     Route: 048
     Dates: start: 20130527
  9. ZOPICLONE [Concomitant]
     Dosage: 5 MG, PRN, UNK
     Route: 048
     Dates: start: 20130718
  10. IMODIUM [Concomitant]
     Dosage: 2 MG, PRN, UNK
     Route: 048
     Dates: start: 20130814
  11. ADVAIR [Concomitant]
     Dosage: 2 PUFFS, UNK, UNK
     Route: 055
     Dates: start: 20131101
  12. RISPERIDONE [Concomitant]
     Dosage: 5 MG, QD
     Route: 048
     Dates: start: 20131008
  13. EFFEXOR [Concomitant]
     Dosage: 112.5 MG, QD
     Route: 048
     Dates: start: 20131008
  14. AMIODARONE [Concomitant]
     Dosage: 200 MG, UNK
     Route: 048
     Dates: start: 20131122
  15. FUROSEMIDE [Concomitant]
     Dosage: 40 MG, QD
     Route: 048
     Dates: start: 20131112
  16. BORTEZOMIB [Concomitant]
     Dosage: UNK
     Dates: start: 20130527

REACTIONS (1)
  - Injury [Not Recovered/Not Resolved]
